FAERS Safety Report 5144872-4 (Version None)
Quarter: 2006Q4

REPORT INFORMATION
  Report Type: 
  Country: None (occurrence: None)
  Receive Date: 20061107
  Receipt Date: 20061023
  Transmission Date: 20070319
  Serious: Yes (Hospitalization)
  Sender: FDA-Public Use
  Company Number: US-AMGEN-STX197971

PATIENT
  Sex: Female

DRUGS (2)
  1. ENBREL [Suspect]
     Indication: RHEUMATOID ARTHRITIS
     Route: 058
     Dates: start: 19990201
  2. ARAVA [Concomitant]
     Dates: start: 20060101

REACTIONS (3)
  - ATRIAL FIBRILLATION [None]
  - ORTHOPEDIC PROCEDURE [None]
  - URINARY TRACT INFECTION [None]
